FAERS Safety Report 4865396-5 (Version None)
Quarter: 2005Q4

REPORT INFORMATION
  Report Type: 
  Country: None (occurrence: None)
  Receive Date: 20051223
  Receipt Date: 20051125
  Transmission Date: 20060501
  Serious: Yes (Other)
  Sender: FDA-Public Use
  Company Number: FRWYE184629NOV05

PATIENT
  Age: 63 Year
  Sex: Female

DRUGS (1)
  1. ENBREL [Suspect]
     Indication: RHEUMATOID ARTHRITIS
     Route: 058

REACTIONS (4)
  - CONDITION AGGRAVATED [None]
  - GRANULOMA SKIN [None]
  - RHEUMATOID ARTHRITIS [None]
  - SKIN HYPERPIGMENTATION [None]
